FAERS Safety Report 10484771 (Version 1)
Quarter: 2014Q3

REPORT INFORMATION
  Report Type: Spontaneous
  Country: US (occurrence: US)
  Receive Date: 20140930
  Receipt Date: 20140930
  Transmission Date: 20150326
  Serious: Yes (Other)
  Sender: FDA-Public Use
  Company Number: US-BAYER-2014-139705

PATIENT
  Age: 31 Year
  Sex: Female

DRUGS (4)
  1. TRAMADOL [Concomitant]
     Active Substance: TRAMADOL
     Dosage: UNK UNK, PRN
  2. CLONIDINE. [Concomitant]
     Active Substance: CLONIDINE
  3. LEVOTHYROXINE [Concomitant]
     Active Substance: LEVOTHYROXINE
  4. RID SHAMPOO [Suspect]
     Active Substance: PIPERONYL BUTOXIDE\PYRETHRIN I
     Indication: PARASITIC INFECTION PROPHYLAXIS
     Dosage: UNK
     Route: 061
     Dates: start: 20140912, end: 20140912

REACTIONS (5)
  - Confusional state [Recovered/Resolved]
  - Convulsion [Recovered/Resolved]
  - Amnesia [Recovered/Resolved]
  - Abnormal behaviour [Recovered/Resolved]
  - Medication error [Unknown]

NARRATIVE: CASE EVENT DATE: 20140912
